FAERS Safety Report 20482964 (Version 2)
Quarter: 2022Q1

REPORT INFORMATION
  Report Type: Spontaneous
  Country: US (occurrence: US)
  Receive Date: 20220217
  Receipt Date: 20220301
  Transmission Date: 20220423
  Serious: Yes (Hospitalization)
  Sender: FDA-Public Use
  Company Number: US-SA-SAC20220214000188

PATIENT
  Sex: Female
  Weight: 109.3 kg

DRUGS (12)
  1. AUBAGIO [Suspect]
     Active Substance: TERIFLUNOMIDE
     Indication: Multiple sclerosis
     Dosage: 1 DF, QD
     Route: 048
     Dates: start: 201809
  2. AUBAGIO [Suspect]
     Active Substance: TERIFLUNOMIDE
     Dosage: 14 MG, QD
     Route: 048
  3. LEVOTHYROXINE [Suspect]
     Active Substance: LEVOTHYROXINE
  4. SPIRONOLACTONE [Concomitant]
     Active Substance: SPIRONOLACTONE
     Dosage: 2 DF, QD
  5. FISH OIL [Concomitant]
     Active Substance: FISH OIL
     Dosage: 340-100
  6. TYLENOL [Concomitant]
     Active Substance: ACETAMINOPHEN
  7. VITAMIN C [Concomitant]
     Active Substance: ASCORBIC ACID
  8. ZANTAC [Concomitant]
     Active Substance: RANITIDINE HYDROCHLORIDE
  9. B-COMPLEX [VITAMIN B COMPLEX] [Concomitant]
     Dosage: 100-2MG
  10. COENZYME Q10 [Concomitant]
     Active Substance: DIETARY SUPPLEMENT\UBIDECARENONE
  11. PROBIOTICS NOS [Concomitant]
     Active Substance: PROBIOTICS NOS
  12. PROBIOTIC BLEND [Concomitant]
     Dosage: 325 MG

REACTIONS (11)
  - Rhinorrhoea [Unknown]
  - Pleural effusion [Unknown]
  - Dyspnoea [Unknown]
  - Abdominal distension [Unknown]
  - Cardiomegaly [Unknown]
  - Skin discolouration [Unknown]
  - Fatigue [Unknown]
  - Hypersomnia [Unknown]
  - Dysuria [Unknown]
  - Breast mass [Unknown]
  - Diarrhoea [Not Recovered/Not Resolved]
